FAERS Safety Report 4452876-X (Version None)
Quarter: 2004Q3

REPORT INFORMATION
  Report Type: 
  Country: None (occurrence: None)
  Receive Date: 20040916
  Receipt Date: 20040908
  Transmission Date: 20050211
  Serious: Yes (Hospitalization)
  Sender: FDA-Public Use
  Company Number: 2004UW19005

PATIENT
  Age: 55 Year
  Sex: Male

DRUGS (3)
  1. SEROQUEL [Suspect]
     Dosage: 100 MG BID PO
     Route: 048
  2. DIABETIC MEDICATIONS [Concomitant]
  3. LITHIUM [Concomitant]

REACTIONS (2)
  - DYSTONIA [None]
  - RENAL FAILURE [None]
